FAERS Safety Report 4870904-4 (Version None)
Quarter: 2006Q1

REPORT INFORMATION
  Report Type: 
  Country: None (occurrence: None)
  Receive Date: 20060103
  Receipt Date: 20051021
  Transmission Date: 20060701
  Serious: Yes (Other)
  Sender: FDA-Public Use
  Company Number: US-BRISTOL-MYERS SQUIBB COMPANY-13153242

PATIENT
  Age: 66 Year
  Sex: Female

DRUGS (4)
  1. ERBITUX [Suspect]
     Indication: COLORECTAL CANCER
     Dosage: THERAPY START DATE 28-JUN-2005, ADMINISTERED TO 11-OCT-05 (3 1/2 MONTHS).
     Route: 042
     Dates: start: 20051011, end: 20051011
  2. IRINOTECAN HCL [Concomitant]
     Dosage: GIVEN AT 175 MG EVERY WEEK X 2 WEEKS/THEN OFF 1 WEEK: FROM 28-JUN-05 TO 11-OCT-05.
     Dates: start: 20051011, end: 20051011
  3. LOPRESSOR [Concomitant]
  4. WARFARIN [Concomitant]

REACTIONS (2)
  - PURPURA [None]
  - VASCULITIS [None]
